FAERS Safety Report 18747452 (Version 1)
Quarter: 2021Q1

REPORT INFORMATION
  Report Type: Report from Study
  Country: CA (occurrence: CA)
  Receive Date: 20210115
  Receipt Date: 20210115
  Transmission Date: 20210419
  Serious: Yes (Hospitalization, Other)
  Sender: FDA-Public Use
  Company Number: CA-JNJFOC-20201233035

PATIENT
  Age: 70 Year
  Sex: Female

DRUGS (1)
  1. TRACLEER [Suspect]
     Active Substance: BOSENTAN
     Indication: PULMONARY ARTERIAL HYPERTENSION
     Route: 065

REACTIONS (6)
  - Oedema [Unknown]
  - Obesity [Unknown]
  - Impaired quality of life [Unknown]
  - Rheumatoid arthritis [Unknown]
  - Cholangitis [Unknown]
  - Sepsis [Unknown]

NARRATIVE: CASE EVENT DATE: 201309
